FAERS Safety Report 9169189 (Version 1)
Quarter: 2013Q1

REPORT INFORMATION
  Report Type: Spontaneous
  Country: CH (occurrence: CH)
  Receive Date: 20130318
  Receipt Date: 20130318
  Transmission Date: 20140127
  Serious: Yes (Other)
  Sender: FDA-Public Use
  Company Number: CH-TEVA-330994ISR

PATIENT
  Age: 23 Year
  Sex: Female
  Weight: 3.31 kg

DRUGS (12)
  1. IRFEN [Suspect]
     Indication: BACK PAIN
     Dosage: 800 MILLIGRAM DAILY;
     Route: 064
     Dates: start: 20110907, end: 201202
  2. IRFEN [Suspect]
     Route: 064
     Dates: start: 2010, end: 20120201
  3. BELARA [Suspect]
     Indication: CONTRACEPTION
     Route: 064
     Dates: start: 2010, end: 20120201
  4. LEXOTANIL [Suspect]
     Route: 064
     Dates: start: 20110816, end: 20111001
  5. KENACORT [Suspect]
     Indication: BACK PAIN
     Route: 064
     Dates: start: 20110817, end: 20110817
  6. SPIRICORT [Suspect]
     Indication: BACK PAIN
     Route: 064
     Dates: start: 20110817, end: 20110827
  7. KETESSE [Suspect]
     Indication: BACK PAIN
     Route: 064
     Dates: start: 20110817, end: 20110817
  8. TRAMAL [Suspect]
     Dates: start: 20110817, end: 20110817
  9. NEURODOL TISSUGEL PLASTER [Suspect]
     Route: 064
     Dates: start: 20110817, end: 20110817
  10. ZALDIAR [Suspect]
     Route: 064
     Dates: start: 20110817, end: 20110907
  11. SIRDALUD [Suspect]
     Route: 064
     Dates: start: 20110907, end: 201202
  12. MYDOCALM DRAGEES [Concomitant]
     Route: 064
     Dates: start: 20110817, end: 20110907

REACTIONS (3)
  - Pregnancy on oral contraceptive [Recovered/Resolved]
  - Exposure during pregnancy [Recovered/Resolved]
  - Normal newborn [Unknown]
